FAERS Safety Report 6306542-6 (Version None)
Quarter: 2009Q3

REPORT INFORMATION
  Report Type: 
  Country: None (occurrence: None)
  Receive Date: 20090812
  Receipt Date: 20090805
  Transmission Date: 20100115
  Serious: Yes (Hospitalization, Other)
  Sender: FDA-Public Use
  Company Number: US-AMGEN-QUU358878

PATIENT
  Sex: Male

DRUGS (4)
  1. ARANESP [Suspect]
     Indication: DRUG USE FOR UNKNOWN INDICATION
  2. UNSPECIFIED MEDICATION [Suspect]
     Route: 048
     Dates: start: 20090318, end: 20090501
  3. COLCHICINE [Concomitant]
  4. PREDNISONE [Concomitant]
     Route: 048

REACTIONS (4)
  - ATRIAL FIBRILLATION [None]
  - CARDIAC FAILURE [None]
  - GOUT [None]
  - INTERNATIONAL NORMALISED RATIO INCREASED [None]
